FAERS Safety Report 17985342 (Version 10)
Quarter: 2020Q3

REPORT INFORMATION
  Report Type: Spontaneous
  Country: ES (occurrence: ES)
  Receive Date: 20200706
  Receipt Date: 20200928
  Transmission Date: 20201103
  Serious: Yes (Life-Threatening, Hospitalization, Other)
  Sender: FDA-Public Use
  Company Number: ES-MYLANLABS-2020M1060273

PATIENT
  Age: 66 Year
  Sex: Male

DRUGS (14)
  1. LOPINAVIR/RITONAVIR [Suspect]
     Active Substance: LOPINAVIR\RITONAVIR
     Indication: COVID-19
     Dosage: 1 DF, 2X PER DAY/400 MG/100 MG, TWICE DAILY
     Route: 048
  2. LOPINAVIR/RITONAVIR [Interacting]
     Active Substance: LOPINAVIR\RITONAVIR
     Dosage: 400 MG/ 100 MG
  3. HYDROXYCHLOROQUINE [Concomitant]
     Active Substance: HYDROXYCHLOROQUINE
     Indication: COVID-19
     Dosage: 200 MILLIGRAM, QD (200 MILLIGRAM, 0.5 DAY)
  4. DULOXETINE. [Interacting]
     Active Substance: DULOXETINE
     Indication: CERVICAL SPINAL STENOSIS
     Dosage: 120 MG, QD
     Route: 065
  5. DULOXETINE. [Interacting]
     Active Substance: DULOXETINE
     Indication: BIPOLAR DISORDER
     Dosage: 120 MG (PER DAY)
     Route: 065
  6. LOPINAVIR/RITONAVIR [Interacting]
     Active Substance: LOPINAVIR\RITONAVIR
     Indication: COVID-19 PNEUMONIA
     Dosage: UNK, BID,400MG/100 MG, 0.5 DAY
     Route: 065
  7. LITHIUM. [Interacting]
     Active Substance: LITHIUM
     Indication: BIPOLAR DISORDER
     Dosage: 800 MILLIGRAM, QD, 800 MG, QD
     Route: 065
  8. HALOPERIDOL. [Interacting]
     Active Substance: HALOPERIDOL
     Indication: BIPOLAR DISORDER
     Dosage: 1 MILLIGRAM, BID, 0.5 DAY, (1 MG TWICE DAILY)
     Route: 065
  9. LOPINAVIR/RITONAVIR [Interacting]
     Active Substance: LOPINAVIR\RITONAVIR
     Dosage: UNK
     Route: 065
  10. HALOPERIDOL. [Interacting]
     Active Substance: HALOPERIDOL
     Indication: DELIRIUM
     Dosage: 1 MG, 2X PER DAY/TWICE DAILY
     Route: 048
  11. HALOPERIDOL. [Interacting]
     Active Substance: HALOPERIDOL
     Dosage: 1 MILLIGRAM, QD (TWICE DAILY)
  12. HYDROXYCHLOROQUINE [Concomitant]
     Active Substance: HYDROXYCHLOROQUINE
     Indication: COVID-19 TREATMENT
     Dosage: 200 MG, 2X PER DAY/200 MG, TWICE DAILY
     Route: 065
  13. HALOPERIDOL. [Interacting]
     Active Substance: HALOPERIDOL
     Dosage: UNK UNK, QD
     Route: 065
  14. HYDROXYCHLOROQUINE [Concomitant]
     Active Substance: HYDROXYCHLOROQUINE
     Indication: COVID-19 PNEUMONIA
     Dosage: 200 MILLIGRAM, BID (200 MG, BID)
     Route: 065

REACTIONS (18)
  - Serotonin syndrome [Recovering/Resolving]
  - Hypertension [Recovering/Resolving]
  - Tachycardia [Recovered/Resolved]
  - Myoclonus [Recovered/Resolved]
  - Depressed level of consciousness [Recovering/Resolving]
  - Hyperreflexia [Recovered/Resolved]
  - Encephalopathy [Recovered/Resolved]
  - Blood creatinine increased [Recovered/Resolved]
  - Drug interaction [Recovered/Resolved]
  - Clonus [Recovered/Resolved]
  - Hyperhidrosis [Recovered/Resolved]
  - Off label use [Unknown]
  - Intentional product misuse [Unknown]
  - Speech sound disorder [Recovering/Resolving]
  - Urinary retention [Recovered/Resolved]
  - Blood pressure increased [Recovered/Resolved]
  - Delirium [Recovering/Resolving]
  - Blood creatine phosphokinase increased [Recovering/Resolving]
